FAERS Safety Report 4702988-8 (Version None)
Quarter: 2005Q2

REPORT INFORMATION
  Report Type: 
  Country: None (occurrence: None)
  Receive Date: 20050624
  Receipt Date: 20050224
  Transmission Date: 20051028
  Serious: Yes (Other)
  Sender: FDA-Public Use
  Company Number: 2005BI005058

PATIENT
  Age: 19 Year
  Sex: Male

DRUGS (6)
  1. NATALIZUMAB [Suspect]
     Indication: MULTIPLE SCLEROSIS
     Dosage: 300 MG;QM;IV
     Route: 042
     Dates: start: 20041201, end: 20050224
  2. PERCOCET [Concomitant]
  3. AXERT [Concomitant]
  4. TRAMADOL HCL [Concomitant]
  5. RESTORIL [Concomitant]
  6. AMIDRINE [Concomitant]

REACTIONS (1)
  - ANAPHYLACTOID REACTION [None]
